APPROVED DRUG PRODUCT: NOREPINEPHRINE BITARTRATE IN 0.9% SODIUM CHLORIDE
Active Ingredient: NOREPINEPHRINE BITARTRATE
Strength: EQ 16MG BASE/250ML (EQ 64MCG BASE/ML)
Dosage Form/Route: SOLUTION;INTRAVENOUS
Application: N215700 | Product #003
Applicant: INFORLIFE SA
Approved: Sep 15, 2022 | RLD: Yes | RS: Yes | Type: RX

PATENTS:
Patent 10888534 | Expires: Apr 26, 2039
Patent 10251848 | Expires: Feb 26, 2035
Patent RE49443 | Expires: Feb 26, 2035
Patent RE49422 | Expires: Feb 26, 2035